FAERS Safety Report 8365361-X (Version None)
Quarter: 2012Q2

REPORT INFORMATION
  Report Type: 
  Country: None (occurrence: None)
  Receive Date: 20120516
  Receipt Date: 20120508
  Transmission Date: 20120825
  Serious: Yes (Other)
  Sender: FDA-Public Use
  Company Number: IT-PFIZER INC-2012113024

PATIENT
  Age: 50 Year
  Sex: Female

DRUGS (2)
  1. DEXAMETHASONE SODIUM POSPHATE [Suspect]
     Dosage: UNK
  2. BORTEZOMIB [Suspect]
     Indication: AMYLOIDOSIS
     Dosage: UNK

REACTIONS (1)
  - ILEUS PARALYTIC [None]
